FAERS Safety Report 17306935 (Version 4)
Quarter: 2020Q4

REPORT INFORMATION
  Report Type: Report from Study
  Country: TW (occurrence: TW)
  Receive Date: 20200123
  Receipt Date: 20201207
  Transmission Date: 20210113
  Serious: Yes (Life-Threatening)
  Sender: FDA-Public Use
  Company Number: TW-PFIZER INC-2020029155

PATIENT
  Age: 41 Year
  Sex: Male
  Weight: 67.5 kg

DRUGS (13)
  1. CYTARABINE. [Suspect]
     Active Substance: CYTARABINE
     Dosage: 3 G (OVER 3 HOURS TWICE DAILY ON DAYS 1,3,5)
     Route: 042
     Dates: start: 20191130, end: 20191204
  2. PLACEBO [Suspect]
     Active Substance: UNSPECIFIED INGREDIENT
     Indication: ACUTE MYELOID LEUKAEMIA
     Dosage: BLINDED THERAPY (100 MG, 1X/DAY VS PLACEBO)
     Route: 048
     Dates: start: 20191029
  3. DIPHENHYDRAMINE HCL [Concomitant]
     Active Substance: DIPHENHYDRAMINE HYDROCHLORIDE
     Dosage: 30 MG, SINGLE (ONCE)
     Route: 041
     Dates: start: 20191103, end: 20191103
  4. HYDROCORTISONE SODIUM SUCCINATE [Concomitant]
     Active Substance: HYDROCORTISONE SODIUM SUCCINATE
     Dosage: 50 MG, UNK
     Route: 041
     Dates: start: 20191109, end: 20191111
  5. CEFEPIME [Concomitant]
     Active Substance: CEFEPIME HYDROCHLORIDE
     Dosage: 6000 MG, UNK
     Route: 041
     Dates: start: 20191105, end: 20191115
  6. DESLORATADINE. [Concomitant]
     Active Substance: DESLORATADINE
     Dosage: 5 MG, UNK
     Route: 048
     Dates: start: 20191103, end: 20191112
  7. ACETAMINOPHEN. [Concomitant]
     Active Substance: ACETAMINOPHEN
     Dosage: 1000 MG, UNK
     Route: 048
     Dates: start: 20191105, end: 20191114
  8. HEPARIN LOCK FLUSH [Concomitant]
     Active Substance: HEPARIN SODIUM
     Dosage: 1000 IU, UNK
     Route: 041
     Dates: start: 20191105, end: 20191105
  9. DAUNORUBICIN HCL [Suspect]
     Active Substance: DAUNORUBICIN HYDROCHLORIDE
     Indication: ACUTE MYELOID LEUKAEMIA
     Dosage: 60 MG, DAILY CONTINUOUS INFUSION
     Route: 041
     Dates: start: 20191029, end: 20191031
  10. HYDROCORTISONE SODIUM SUCCINATE [Concomitant]
     Active Substance: HYDROCORTISONE SODIUM SUCCINATE
     Dosage: 100 MG, UNK
     Route: 041
     Dates: start: 20191008, end: 20191108
  11. DIPHENHYDRAMINE HCL [Concomitant]
     Active Substance: DIPHENHYDRAMINE HYDROCHLORIDE
     Dosage: 30 MG, SINGLE (ONCE)
     Route: 041
     Dates: start: 20191101, end: 20191101
  12. HYDROCORTISONE SODIUM SUCCINATE [Concomitant]
     Active Substance: HYDROCORTISONE SODIUM SUCCINATE
     Dosage: 5 MG, UNK
     Route: 041
     Dates: start: 20191104, end: 20191107
  13. CYTARABINE. [Suspect]
     Active Substance: CYTARABINE
     Indication: ACUTE MONOCYTIC LEUKAEMIA
     Dosage: 100 MG, DAILY BY CONTINUOUS INFUSION
     Route: 041
     Dates: start: 20191029, end: 20191104

REACTIONS (1)
  - Septic shock [Recovered/Resolved]

NARRATIVE: CASE EVENT DATE: 20191113
